FAERS Safety Report 5217338-0 (Version None)
Quarter: 2007Q1

REPORT INFORMATION
  Report Type: 
  Country: None (occurrence: None)
  Receive Date: 20070124
  Receipt Date: 20060125
  Transmission Date: 20070707
  Serious: Yes (Hospitalization)
  Sender: FDA-Public Use
  Company Number: US-GLAXOSMITHKLINE-A0588797A

PATIENT
  Age: 11 Year
  Sex: Male

DRUGS (5)
  1. PAXIL CR [Suspect]
     Indication: PANIC DISORDER
     Dosage: 12.5MG PER DAY
     Route: 048
     Dates: start: 20060104, end: 20060111
  2. PAROXETINE HCL [Suspect]
     Indication: PANIC DISORDER
     Dosage: 10MG PER DAY
     Route: 048
     Dates: start: 20051117, end: 20060104
  3. PAXIL [Suspect]
     Indication: PANIC DISORDER
     Route: 048
     Dates: start: 20020101
  4. ALLEGRA [Concomitant]
  5. ATIVAN [Concomitant]

REACTIONS (11)
  - ABDOMINAL PAIN UPPER [None]
  - ANXIETY [None]
  - DECREASED ACTIVITY [None]
  - DYSKINESIA [None]
  - FLATULENCE [None]
  - HEART RATE INCREASED [None]
  - MALAISE [None]
  - MUSCLE TWITCHING [None]
  - PANIC ATTACK [None]
  - SOMNOLENCE [None]
  - THERAPEUTIC RESPONSE DECREASED [None]
